FAERS Safety Report 20199262 (Version 2)
Quarter: 2022Q1

REPORT INFORMATION
  Report Type: Spontaneous
  Country: US (occurrence: US)
  Receive Date: 20211217
  Receipt Date: 20220125
  Transmission Date: 20220423
  Serious: Yes (Hospitalization, Other)
  Sender: FDA-Public Use
  Company Number: US-PFIZER INC-202101712897

PATIENT
  Age: 13 Month
  Sex: Female
  Weight: 6.715 kg

DRUGS (1)
  1. GENOTROPIN [Suspect]
     Active Substance: SOMATROPIN
     Dosage: 5 MG

REACTIONS (3)
  - Drug dose omission by device [Unknown]
  - Device malfunction [Unknown]
  - Device leakage [Unknown]
